FAERS Safety Report 9920835 (Version 2)
Quarter: 2014Q1

REPORT INFORMATION
  Report Type: Report from Study
  Country: FR (occurrence: FR)
  Receive Date: 20140225
  Receipt Date: 20140225
  Transmission Date: 20141002
  Serious: Yes (Hospitalization)
  Sender: FDA-Public Use
  Company Number: FR-ROCHE-1164262

PATIENT
  Age: 56 Year
  Sex: Female

DRUGS (31)
  1. RITUXIMAB [Suspect]
     Indication: RHEUMATOID ARTHRITIS
     Dosage: DAY 1
     Route: 042
     Dates: start: 20071221
  2. RITUXIMAB [Suspect]
     Dosage: DAY 15
     Route: 042
     Dates: start: 20080116
  3. RITUXIMAB [Suspect]
     Dosage: DAY 1
     Route: 042
     Dates: start: 20080618
  4. RITUXIMAB [Suspect]
     Dosage: DAY 15
     Route: 042
     Dates: start: 20080701
  5. RITUXIMAB [Suspect]
     Dosage: DAY 1
     Route: 042
     Dates: start: 20090312
  6. RITUXIMAB [Suspect]
     Dosage: DAY 1
     Route: 042
     Dates: start: 20100114
  7. RITUXIMAB [Suspect]
     Dosage: DAY 15
     Route: 042
     Dates: start: 20100129
  8. RITUXIMAB [Suspect]
     Dosage: DAY 1
     Route: 042
     Dates: start: 20100706
  9. RITUXIMAB [Suspect]
     Dosage: DAY 15
     Route: 042
     Dates: start: 20100722
  10. RITUXIMAB [Suspect]
     Dosage: DAY 1
     Route: 042
     Dates: start: 20110210
  11. RITUXIMAB [Suspect]
     Dosage: DAY 15
     Route: 042
     Dates: start: 20110228
  12. RITUXIMAB [Suspect]
     Dosage: DAY 1
     Route: 042
     Dates: start: 20110913
  13. RITUXIMAB [Suspect]
     Dosage: DAY 15
     Route: 042
     Dates: start: 20110929
  14. RITUXIMAB [Suspect]
     Dosage: DAY 1
     Route: 042
     Dates: start: 20120412
  15. RITUXIMAB [Suspect]
     Dosage: DAY 15
     Route: 042
     Dates: start: 20120426
  16. RITUXIMAB [Suspect]
     Dosage: DAY 1
     Route: 042
     Dates: start: 20130423
  17. RITUXIMAB [Suspect]
     Dosage: DAY 15
     Route: 042
     Dates: start: 20130522
  18. CORTANCYL [Concomitant]
     Dosage: DAILY
     Route: 065
  19. CORTANCYL [Concomitant]
     Dosage: DAILY
     Route: 065
  20. CORTANCYL [Concomitant]
     Dosage: DAILY
     Route: 065
  21. CORTANCYL [Concomitant]
     Dosage: DAILY
     Route: 065
  22. CORTANCYL [Concomitant]
     Dosage: DAILY
     Route: 065
  23. METHOTREXATE [Concomitant]
     Dosage: WEEKLY
     Route: 065
  24. METHOTREXATE [Concomitant]
     Dosage: WEEKLY
     Route: 065
  25. METHOTREXATE [Concomitant]
     Dosage: WEEKLY
     Route: 065
  26. METHOTREXATE [Concomitant]
     Dosage: WEEKLY
     Route: 065
  27. METHOTREXATE [Concomitant]
     Dosage: WEEKLY
     Route: 065
  28. METHOTREXATE [Concomitant]
     Dosage: WEEKLY
     Route: 065
  29. METHOTREXATE [Concomitant]
     Dosage: WEEKLY
     Route: 065
  30. METHOTREXATE [Concomitant]
     Dosage: WEEKLY
     Route: 065
  31. METHOTREXATE [Concomitant]
     Dosage: WEEKLY
     Route: 065

REACTIONS (8)
  - Deep vein thrombosis [Recovered/Resolved]
  - Pulmonary embolism [Recovered/Resolved]
  - Colitis [Recovered/Resolved]
  - Bronchitis [Recovered/Resolved]
  - Vulval ulceration [Recovered/Resolved]
  - Onychomycosis [Recovered/Resolved]
  - Sinusitis [Recovered/Resolved]
  - Bronchitis [Recovered/Resolved]
